FAERS Safety Report 6437503-4 (Version None)
Quarter: 2009Q4

REPORT INFORMATION
  Report Type: 
  Country: None (occurrence: None)
  Receive Date: 20091112
  Receipt Date: 20091104
  Transmission Date: 20100525
  Serious: Yes (Other)
  Sender: FDA-Public Use
  Company Number: PHHO2009IT12737

PATIENT
  Sex: Female

DRUGS (3)
  1. ZOLEDRONATE T29581+ [Suspect]
     Indication: BONE DENSITY DECREASED
     Dosage: UNK
     Dates: start: 20070416, end: 20071215
  2. CGS 20267 T30748+ [Suspect]
     Indication: BONE DENSITY DECREASED
     Dosage: UNK
     Dates: start: 20070416, end: 20071215
  3. DECAPEPTYL [Concomitant]
     Dosage: UNK
     Dates: start: 20070416, end: 20071215

REACTIONS (1)
  - GINGIVAL BLEEDING [None]
